FAERS Safety Report 24667549 (Version 1)
Quarter: 2024Q4

REPORT INFORMATION
  Report Type: Spontaneous
  Country: SA (occurrence: SA)
  Receive Date: 20241126
  Receipt Date: 20241126
  Transmission Date: 20250114
  Serious: Yes (Hospitalization, Other)
  Sender: AMGEN
  Company Number: SA-AMGEN-SAUSP2024231280

PATIENT

DRUGS (2)
  1. EVOLOCUMAB [Suspect]
     Active Substance: EVOLOCUMAB
     Indication: Type IIa hyperlipidaemia
     Dosage: UNK
     Route: 065
  2. EVOLOCUMAB [Suspect]
     Active Substance: EVOLOCUMAB
     Indication: Dyslipidaemia

REACTIONS (9)
  - Angina unstable [Unknown]
  - Cardiac failure [Unknown]
  - Myocardial infarction [Unknown]
  - Coronary revascularisation [Unknown]
  - Cerebrovascular accident [Unknown]
  - Transient ischaemic attack [Unknown]
  - Rhabdomyolysis [Unknown]
  - Renal impairment [Unknown]
  - Myalgia [Unknown]
